FAERS Safety Report 10188772 (Version 5)
Quarter: 2016Q1

REPORT INFORMATION
  Report Type: Spontaneous
  Country: US (occurrence: US)
  Receive Date: 20140522
  Receipt Date: 20160325
  Transmission Date: 20160525
  Serious: Yes (Hospitalization)
  Sender: FDA-Public Use
  Company Number: US-PFIZER INC-2014136678

PATIENT
  Age: 76 Year
  Sex: Male
  Weight: 74.83 kg

DRUGS (2)
  1. SUTENT [Suspect]
     Active Substance: SUNITINIB MALATE
     Indication: METASTATIC RENAL CELL CARCINOMA
     Dosage: 50 MG ONCE DAILY (28 DAYS EVERY 6 WEEKS)
     Dates: start: 20131017, end: 20140311
  2. SUTENT [Suspect]
     Active Substance: SUNITINIB MALATE
     Dosage: 37.5 MG, CYCLIC  (DAILY, 4 WEEKS OUT OF 6)
     Route: 048

REACTIONS (7)
  - Malaise [Unknown]
  - Pleural effusion [Unknown]
  - Fatigue [Unknown]
  - Influenza [Unknown]
  - Wound secretion [Unknown]
  - Weight decreased [Recovering/Resolving]
  - Palmar-plantar erythrodysaesthesia syndrome [Unknown]
